FAERS Safety Report 8399784-X (Version None)
Quarter: 2012Q2

REPORT INFORMATION
  Report Type: 
  Country: None (occurrence: None)
  Receive Date: 20120531
  Receipt Date: 20120518
  Transmission Date: 20120825
  Serious: Yes (Death)
  Sender: FDA-Public Use
  Company Number: US-CELGENEUS-163-21660-12042653

PATIENT
  Sex: Female

DRUGS (2)
  1. ABRAXANE [Suspect]
     Indication: BREAST CANCER
     Route: 041
     Dates: start: 20120328
  2. HERCEPTIN [Concomitant]
     Indication: BREAST CANCER
     Dosage: 376 MILLIGRAM
     Route: 065
     Dates: start: 20120328, end: 20120328

REACTIONS (1)
  - BREAST CANCER [None]
